FAERS Safety Report 8056302-3 (Version None)
Quarter: 2012Q1

REPORT INFORMATION
  Report Type: 
  Country: None (occurrence: None)
  Receive Date: 20120119
  Receipt Date: 20120106
  Transmission Date: 20120608
  Serious: Yes (Hospitalization)
  Sender: FDA-Public Use
  Company Number: US-UCBSA-023155

PATIENT
  Age: 34 Year
  Sex: Female
  Weight: 69.8 kg

DRUGS (11)
  1. AZATHIOPRINE [Concomitant]
     Dates: start: 20080720, end: 20100729
  2. LOMOTIL [Concomitant]
  3. PREDNISONE TAB [Concomitant]
     Dates: start: 20100922
  4. AZATHIOPRINE [Concomitant]
     Dates: start: 20100922
  5. DILAUDID [Concomitant]
  6. PREDNISONE TAB [Concomitant]
     Dosage: FINISHED TAPER
     Dates: start: 20080923, end: 20081028
  7. PREDNISONE TAB [Concomitant]
     Dosage: TAPERED OFF
     Dates: start: 20090422, end: 20090902
  8. PREDNISONE TAB [Concomitant]
     Dates: start: 20040825, end: 20040101
  9. PREDNISONE TAB [Concomitant]
     Dosage: FINISHED TAPER
     Dates: start: 20080702, end: 20080813
  10. CIMZIA [Suspect]
     Indication: CROHN'S DISEASE
     Route: 058
     Dates: start: 20101020
  11. PREDNISONE TAB [Concomitant]
     Dosage: FINISHED TAPER
     Dates: start: 20090119, end: 20100210

REACTIONS (2)
  - CLOSTRIDIAL INFECTION [None]
  - CROHN'S DISEASE [None]
